FAERS Safety Report 26117337 (Version 1)
Quarter: 2025Q4

REPORT INFORMATION
  Report Type: Spontaneous
  Country: CN (occurrence: CN)
  Receive Date: 20251203
  Receipt Date: 20251203
  Transmission Date: 20260117
  Serious: Yes (Hospitalization)
  Sender: BEIGENE
  Company Number: CN-BEONEMEDICINES-BGN-2025-021017

PATIENT
  Age: 61 Year
  Sex: Female
  Weight: 51 kg

DRUGS (12)
  1. TISLELIZUMAB [Suspect]
     Active Substance: TISLELIZUMAB
     Indication: Adenocarcinoma gastric
     Dosage: 200 MILLIGRAM, D1
  2. TISLELIZUMAB [Suspect]
     Active Substance: TISLELIZUMAB
     Dosage: 200 MILLIGRAM, D1
     Route: 041
  3. TISLELIZUMAB [Suspect]
     Active Substance: TISLELIZUMAB
     Dosage: 200 MILLIGRAM, D1
     Route: 041
  4. TISLELIZUMAB [Suspect]
     Active Substance: TISLELIZUMAB
     Dosage: 200 MILLIGRAM, D1
  5. CAPECITABINE [Suspect]
     Active Substance: CAPECITABINE
     Indication: Adenocarcinoma gastric
     Dosage: 1.5 GRAM, BID, D1-D14
  6. CAPECITABINE [Suspect]
     Active Substance: CAPECITABINE
     Dosage: 1.5 GRAM, BID, D1-D14
     Route: 048
  7. CAPECITABINE [Suspect]
     Active Substance: CAPECITABINE
     Dosage: 1.5 GRAM, BID, D1-D14
     Route: 048
  8. CAPECITABINE [Suspect]
     Active Substance: CAPECITABINE
     Dosage: 1.5 GRAM, BID, D1-D14
  9. OXALIPLATIN [Suspect]
     Active Substance: OXALIPLATIN
     Indication: Adenocarcinoma gastric
     Dosage: 0.2 GRAM, D1
  10. OXALIPLATIN [Suspect]
     Active Substance: OXALIPLATIN
     Dosage: 0.2 GRAM, D1
     Route: 041
  11. OXALIPLATIN [Suspect]
     Active Substance: OXALIPLATIN
     Dosage: 0.2 GRAM, D1
     Route: 041
  12. OXALIPLATIN [Suspect]
     Active Substance: OXALIPLATIN
     Dosage: 0.2 GRAM, D1

REACTIONS (1)
  - Myelosuppression [Unknown]

NARRATIVE: CASE EVENT DATE: 20251102
